FAERS Safety Report 10375117 (Version 1)
Quarter: 2014Q3

REPORT INFORMATION
  Report Type: Spontaneous
  Country: DE (occurrence: DE)
  Receive Date: 20140811
  Receipt Date: 20140811
  Transmission Date: 20150326
  Serious: Yes (Life-Threatening)
  Sender: FDA-Public Use
  Company Number: DE-ASTRAZENECA-2014SE56759

PATIENT
  Age: 48 Year
  Sex: Female
  Weight: 56 kg

DRUGS (14)
  1. THEOPHYLLINE [Concomitant]
     Active Substance: THEOPHYLLINE
     Indication: ANAESTHESIA
  2. METAMIZOLE [Concomitant]
     Active Substance: METAMIZOLE
     Indication: ANAESTHESIA
  3. MONOSTEP [Suspect]
     Active Substance: ETHINYL ESTRADIOL\LEVONORGESTREL
     Route: 048
  4. BISPOROLOL [Concomitant]
     Route: 048
  5. PROPOFOL. [Suspect]
     Active Substance: PROPOFOL
     Indication: ANAESTHESIA
     Route: 042
     Dates: start: 20140604
  6. NOVAMINSULFON [Suspect]
     Active Substance: METAMIZOLE
     Route: 048
     Dates: start: 20140605, end: 20140605
  7. ROCURONIUM BROMIDE. [Concomitant]
     Active Substance: ROCURONIUM BROMIDE
     Indication: ANAESTHESIA
  8. PRILOCAIN [Suspect]
     Active Substance: PRILOCAINE
     Indication: ANALGESIC THERAPY
     Route: 014
     Dates: start: 20140604
  9. SUFENTA [Suspect]
     Active Substance: SUFENTANIL CITRATE
     Indication: ANAESTHESIA
     Route: 042
     Dates: start: 20140604
  10. BUPIVACAINE [Concomitant]
     Active Substance: BUPIVACAINE
  11. DEXAMETHASONE. [Concomitant]
     Active Substance: DEXAMETHASONE
     Indication: ANAESTHESIA
  12. PARACETAMOL [Concomitant]
     Active Substance: ACETAMINOPHEN
     Route: 048
     Dates: end: 20140605
  13. TRAMAL [Suspect]
     Active Substance: TRAMADOL
     Route: 048
     Dates: start: 20140605, end: 20140606
  14. ENOXAPARIN [Concomitant]
     Active Substance: ENOXAPARIN
     Route: 058

REACTIONS (1)
  - Drug-induced liver injury [Not Recovered/Not Resolved]

NARRATIVE: CASE EVENT DATE: 20140606
